FAERS Safety Report 7933487-8 (Version None)
Quarter: 2011Q4

REPORT INFORMATION
  Report Type: 
  Country: None (occurrence: None)
  Receive Date: 20111122
  Receipt Date: 20110915
  Transmission Date: 20120403
  Serious: No
  Sender: FDA-Public Use
  Company Number: US-BAYER-2011-091017

PATIENT
  Age: 82 Year
  Sex: Male
  Weight: 109 kg

DRUGS (8)
  1. SIMVASTATIN [Concomitant]
  2. AMLODIPINE [Concomitant]
  3. ATENOLOL [Concomitant]
  4. ASPIRIN [Concomitant]
  5. NIACIN [Concomitant]
  6. OMEPRAZOLE [Concomitant]
  7. LISINOPRIL [Concomitant]
  8. ALEVE (CAPLET) [Suspect]
     Indication: ANALGESIC THERAPY
     Dosage: UNK UNK, QD
     Route: 048
     Dates: start: 20070101

REACTIONS (1)
  - NO ADVERSE EVENT [None]
